FAERS Safety Report 4974603-X (Version None)
Quarter: 2006Q1

REPORT INFORMATION
  Report Type: 
  Country: None (occurrence: None)
  Receive Date: 20060227
  Receipt Date: 20051214
  Transmission Date: 20060701
  Serious: No
  Sender: FDA-Public Use
  Company Number: PHEH2005US13519

PATIENT
  Age: 57 Year
  Sex: Male

DRUGS (1)
  1. ENABLEX [Suspect]
     Indication: HYPERTONIC BLADDER
     Dosage: 15 MG, QD
     Dates: start: 20051207

REACTIONS (5)
  - CONSTIPATION [None]
  - DISTURBANCE IN SEXUAL AROUSAL [None]
  - DRUG INEFFECTIVE [None]
  - DRY MOUTH [None]
  - HEADACHE [None]
